FAERS Safety Report 16404409 (Version 1)
Quarter: 2019Q3

REPORT INFORMATION
  Report Type: Spontaneous
  Country: US (occurrence: US)
  Receive Date: 20190606
  Receipt Date: 20190606
  Transmission Date: 20191004
  Serious: Yes (Hospitalization, Disabling)
  Sender: FDA-Public Use
  Company Number: None

PATIENT
  Age: 54 Year
  Sex: Female
  Weight: 75.15 kg

DRUGS (2)
  1. OMEGA3 MAGNESIUM NOW TO COMBAT SIDE EFFECTS [Concomitant]
  2. CIPRO [Suspect]
     Active Substance: CIPROFLOXACIN HYDROCHLORIDE
     Indication: INFECTION
     Dates: start: 20190427, end: 20190429

REACTIONS (5)
  - Meningism [None]
  - Influenza like illness [None]
  - Drug hypersensitivity [None]
  - Neuropathy peripheral [None]
  - Vomiting [None]

NARRATIVE: CASE EVENT DATE: 20190429
